FAERS Safety Report 15098652 (Version 1)
Quarter: 2018Q3

REPORT INFORMATION
  Report Type: Report from Study
  Country: US (occurrence: US)
  Receive Date: 20180702
  Receipt Date: 20180702
  Transmission Date: 20181010
  Serious: Yes (Hospitalization)
  Sender: FDA-Public Use
  Company Number: PHEH2018US025131

PATIENT
  Sex: Male

DRUGS (1)
  1. ENTRESTO [Suspect]
     Active Substance: SACUBITRIL\VALSARTAN
     Indication: PRODUCT USED FOR UNKNOWN INDICATION
     Dosage: 1 DF(SACUBITRIL 24 MG /VALSARTAN 26 MG), UNK
     Route: 065

REACTIONS (5)
  - Contusion [Unknown]
  - Fatigue [Unknown]
  - Fall [Unknown]
  - Dyspnoea [Unknown]
  - Dehydration [Unknown]
